FAERS Safety Report 11477092 (Version 1)
Quarter: 2015Q3

REPORT INFORMATION
  Report Type: Spontaneous
  Country: US (occurrence: US)
  Receive Date: 20150909
  Receipt Date: 20150909
  Transmission Date: 20151125
  Serious: No
  Sender: FDA-Public Use
  Company Number: US-JAZZ-2014-US-011197

PATIENT
  Sex: Female
  Weight: 59.41 kg

DRUGS (3)
  1. XYREM [Suspect]
     Active Substance: SODIUM OXYBATE
     Dosage: DOSE ADJUSTMENTS
     Route: 048
  2. XYREM [Suspect]
     Active Substance: SODIUM OXYBATE
     Dosage: TAKES 2.25 GRAMS OR LESS TWICE NIGHTLY, OFTEN TAKES 75% OF THE AMOUNT OF DRUG.
     Route: 048
  3. XYREM [Suspect]
     Active Substance: SODIUM OXYBATE
     Indication: NARCOLEPSY
     Dosage: 2.25 G, BID
     Route: 048
     Dates: start: 200505, end: 200509

REACTIONS (3)
  - Feeling abnormal [Recovering/Resolving]
  - Incorrect dose administered [Unknown]
  - Somnambulism [Recovering/Resolving]
